FAERS Safety Report 4321855-5 (Version None)
Quarter: 2004Q1

REPORT INFORMATION
  Report Type: 
  Country: None (occurrence: None)
  Receive Date: 20040322
  Receipt Date: 20040322
  Transmission Date: 20041129
  Serious: No
  Sender: FDA-Public Use
  Company Number: None

PATIENT
  Age: 39 Year
  Sex: Male
  Weight: 73.9363 kg

DRUGS (2)
  1. VIOXX [Suspect]
     Dosage: ONE PO QD
     Route: 048
  2. ZYPREXA [Suspect]
     Dosage: ONE PO QD
     Route: 048

REACTIONS (1)
  - BIPOLAR DISORDER [None]
